FAERS Safety Report 9133656 (Version 1)
Quarter: 2013Q1

REPORT INFORMATION
  Report Type: Spontaneous
  Country: CN (occurrence: CN)
  Receive Date: 20130301
  Receipt Date: 20130301
  Transmission Date: 20140127
  Serious: Yes (Other)
  Sender: FDA-Public Use
  Company Number: PHHY2012CN127724

PATIENT
  Age: 80 Year
  Sex: Female
  Weight: 60 kg

DRUGS (2)
  1. STARLIX [Suspect]
     Indication: GLUCOSE URINE PRESENT
     Dosage: 120 MG, TID
     Dates: start: 20101120, end: 20101120
  2. METFORMIN [Suspect]
     Dosage: 0.5 MG, QD
     Route: 048

REACTIONS (1)
  - Face oedema [Recovered/Resolved]
